FAERS Safety Report 26109458 (Version 1)
Quarter: 2025Q4

REPORT INFORMATION
  Report Type: Report from Study
  Country: US (occurrence: US)
  Receive Date: 20251201
  Receipt Date: 20251201
  Transmission Date: 20260118
  Serious: Yes (Other)
  Sender: MYLAN
  Company Number: US-MYLANLABS-2025M1101062

PATIENT
  Age: 99 Year
  Sex: Male

DRUGS (1)
  1. EFFEXOR [Suspect]
     Active Substance: VENLAFAXINE HYDROCHLORIDE
     Indication: Product used for unknown indication
     Dosage: 225 MILLIGRAM, QD (1X A DAY)

REACTIONS (3)
  - Exophthalmos [Unknown]
  - Mood swings [Unknown]
  - Aggression [Unknown]

NARRATIVE: CASE EVENT DATE: 20251125
